FAERS Safety Report 8455779-9 (Version None)
Quarter: 2012Q2

REPORT INFORMATION
  Report Type: 
  Country: None (occurrence: None)
  Receive Date: 20120613
  Receipt Date: 20120530
  Transmission Date: 20120825
  Serious: Yes (Other)
  Sender: FDA-Public Use
  Company Number: DSA_57777_2012

PATIENT

DRUGS (4)
  1. CELECOXIB [Suspect]
     Indication: COLORECTAL CANCER METASTATIC
     Dosage: (200 MG BID ORAL), (A FEW MONTHS)
     Route: 048
  2. LEUCOVORIN CALCIUM [Suspect]
     Indication: COLORECTAL CANCER METASTATIC
     Dosage: (200 MG/M2 INTRAVENOUS DRIP)
     Route: 041
  3. FLUOROURACIL [Suspect]
     Indication: COLORECTAL CANCER METASTATIC
     Dosage: (400 MG/M2 INTRAVENOUS (NOT OTHERWISE SPECIFIED)), (600 MG/M2 INTRAVENOUS DRIP)
     Route: 042
  4. OXALIPLATIN [Suspect]
     Indication: COLORECTAL CANCER METASTATIC
     Dosage: (85 MG/M2 (QOW) INTRAVENOUS DRIP)
     Route: 041

REACTIONS (1)
  - BONE MARROW FAILURE [None]
